FAERS Safety Report 8558196-6 (Version None)
Quarter: 2012Q3

REPORT INFORMATION
  Report Type: 
  Country: None (occurrence: None)
  Receive Date: 20120801
  Receipt Date: 20120717
  Transmission Date: 20120928
  Serious: No
  Sender: FDA-Public Use
  Company Number: US-ASTRAZENECA-2012SE50979

PATIENT
  Age: 46 Year
  Sex: Female

DRUGS (28)
  1. CRESTOR [Suspect]
     Route: 048
     Dates: start: 20120606
  2. NEXIUM [Suspect]
     Route: 048
  3. OMEPRAZOLE [Suspect]
     Route: 048
  4. BUPROPION HCL [Concomitant]
  5. CLONAZEPAM [Concomitant]
  6. TIZANIDINE HCL [Concomitant]
  7. LORAZEPAM [Concomitant]
  8. EXCEDRIN (MIGRAINE) [Concomitant]
  9. CRESTOR [Suspect]
     Route: 048
  10. SEROQUEL XR [Concomitant]
  11. HERPECIN L STICK [Concomitant]
  12. EX-LAX CHOCOLATE [Concomitant]
  13. GABAPENTIN [Concomitant]
  14. HYDROMORPHINE HYDROCHLORIDE [Concomitant]
  15. LAMOTRIGINE [Concomitant]
  16. PANTOPRAZOLE SOD DR [Concomitant]
  17. NABUMETONE [Concomitant]
  18. FENOFIBRATE [Concomitant]
  19. LACTULOSE [Concomitant]
  20. VENTOLIN HFA [Concomitant]
  21. AZITHROMYCIN [Concomitant]
  22. SUPER POIGRIP [Concomitant]
  23. ZOLPIDEM TARTRATE [Concomitant]
  24. TRAMADOL HCL [Concomitant]
  25. ADVIL MIGRAINE LIQUI-GELS [Concomitant]
  26. RA TRIPLE ANTIBIOTIC ONTMENT [Concomitant]
  27. OXYCODONE AND ACETAMINOPHEN [Concomitant]
  28. SUMATRIPTAN SUCC [Concomitant]

REACTIONS (4)
  - INTENTIONAL DRUG MISUSE [None]
  - NAUSEA [None]
  - VOMITING [None]
  - MALAISE [None]
